FAERS Safety Report 8614383-X (Version None)
Quarter: 2012Q3

REPORT INFORMATION
  Report Type: 
  Country: None (occurrence: None)
  Receive Date: 20120823
  Receipt Date: 20120815
  Transmission Date: 20120928
  Serious: Yes (Disabling, Other)
  Sender: FDA-Public Use
  Company Number: BR-SANOFI-AVENTIS-2012SA058894

PATIENT
  Age: 57 Year
  Sex: Female
  Weight: 57 kg

DRUGS (6)
  1. METFORMIN [Concomitant]
     Route: 048
     Dates: start: 20100101
  2. BROMAZEPAM [Concomitant]
     Indication: SEDATION
     Route: 048
     Dates: start: 20111101
  3. GLYBURIDE [Concomitant]
     Route: 048
  4. INSULINS AND ANALOGUES,FAST-ACTING [Concomitant]
  5. CAPTOPRIL [Concomitant]
     Indication: BLOOD PRESSURE
     Route: 048
     Dates: start: 20080101
  6. LANTUS [Suspect]
     Route: 058
     Dates: start: 20100101, end: 20120501

REACTIONS (6)
  - ANGIOPATHY [None]
  - PAIN [None]
  - THROMBOSIS [None]
  - HEADACHE [None]
  - HYPERGLYCAEMIA [None]
  - NAUSEA [None]
